FAERS Safety Report 11202788 (Version 1)
Quarter: 2015Q2

REPORT INFORMATION
  Report Type: Spontaneous
  Country: US (occurrence: None)
  Receive Date: 20150608
  Receipt Date: 20150608
  Transmission Date: 20150821
  Serious: No
  Sender: FDA-Public Use
  Company Number: 2015TUS002066

PATIENT
  Age: 65 Year
  Sex: Female

DRUGS (3)
  1. BRINTELLIX [Suspect]
     Active Substance: VORTIOXETINE HYDROBROMIDE
     Indication: MAJOR DEPRESSION
     Route: 048
  2. PROTON PUMP INHIBITORS (PROTON PUMP INHIBITORS) [Concomitant]
  3. ROBAXIN (METHOCARBAMOL) [Concomitant]

REACTIONS (1)
  - Rash generalised [None]
